FAERS Safety Report 6619671-4 (Version None)
Quarter: 2010Q1

REPORT INFORMATION
  Report Type: 
  Country: None (occurrence: None)
  Receive Date: 20100309
  Receipt Date: 20100302
  Transmission Date: 20100710
  Serious: Yes (Other)
  Sender: FDA-Public Use
  Company Number: US-JNJFOC-20091205161

PATIENT
  Sex: Female
  Weight: 89.36 kg

DRUGS (3)
  1. FENTANYL [Suspect]
     Indication: ARTHRALGIA
     Route: 062
  2. FENTANYL [Suspect]
     Route: 062
  3. UNKNOWN MEDICATION [Concomitant]

REACTIONS (4)
  - PRODUCT ADHESION ISSUE [None]
  - SURGERY [None]
  - WITHDRAWAL SYNDROME [None]
  - WRONG TECHNIQUE IN DRUG USAGE PROCESS [None]
